FAERS Safety Report 22183413 (Version 3)
Quarter: 2023Q2

REPORT INFORMATION
  Report Type: Report from Study
  Country: CA (occurrence: CA)
  Receive Date: 20230406
  Receipt Date: 20230518
  Transmission Date: 20230721
  Serious: Yes (Hospitalization)
  Sender: FDA-Public Use
  Company Number: CA-ABBVIE-4698577

PATIENT
  Age: 36 Year
  Sex: Female
  Weight: 50.6 kg

DRUGS (21)
  1. VENETOCLAX [Suspect]
     Active Substance: VENETOCLAX
     Indication: Acute myeloid leukaemia
     Route: 048
     Dates: start: 20230206, end: 20230319
  2. VENETOCLAX [Suspect]
     Active Substance: VENETOCLAX
     Indication: Acute myeloid leukaemia
     Route: 048
     Dates: start: 20230403
  3. AZACITIDINE [Suspect]
     Active Substance: AZACITIDINE
     Indication: Acute myeloid leukaemia
     Dosage: DAYS 1-5 OF EACH 28 DAY CYCLE
     Route: 058
     Dates: start: 20230206
  4. VALTREX [Concomitant]
     Active Substance: VALACYCLOVIR HYDROCHLORIDE
     Indication: Viral infection
     Route: 048
     Dates: start: 20230110
  5. SEPTRA [Concomitant]
     Active Substance: SULFAMETHOXAZOLE\TRIMETHOPRIM
     Indication: Bacterial infection
     Dosage: TIME INTERVAL: 0.33333333 WEEKS: 800/160 MG
     Route: 048
     Dates: start: 20230110, end: 20230320
  6. BECLOMETHASONE [Concomitant]
     Active Substance: BECLOMETHASONE
     Indication: Graft versus host disease
     Route: 048
     Dates: start: 20221230
  7. ENTOCORT [Concomitant]
     Active Substance: BUDESONIDE
     Indication: Graft versus host disease
     Dosage: TIME INTERVAL: 0.33333333 DAYS
     Route: 048
     Dates: start: 20221230, end: 20230222
  8. ENTOCORT [Concomitant]
     Active Substance: BUDESONIDE
     Indication: Graft versus host disease
     Route: 048
     Dates: start: 20230223, end: 20230319
  9. FOLIC ACID [Concomitant]
     Active Substance: FOLIC ACID
     Indication: Myelosuppression
     Route: 048
     Dates: start: 20230110
  10. CITALOPRAM [Concomitant]
     Active Substance: CITALOPRAM HYDROBROMIDE
     Indication: Adjustment disorder
     Dates: start: 20220719
  11. METOCLOPRAMIDE HYDROCHLORIDE [Concomitant]
     Active Substance: METOCLOPRAMIDE HYDROCHLORIDE
     Indication: Nausea
     Dosage: TIME INTERVAL: AS NECESSARY
     Route: 048
     Dates: start: 20221214
  12. ATIVAN [Concomitant]
     Active Substance: LORAZEPAM
     Indication: Adjustment disorder
     Dosage: TIME INTERVAL: AS NECESSARY
     Route: 048
     Dates: start: 20221214
  13. LUPRON [Concomitant]
     Active Substance: LEUPROLIDE ACETATE
     Indication: Contraception
     Route: 030
     Dates: start: 20220306
  14. MOMETASONE FUROATE [Concomitant]
     Active Substance: MOMETASONE FUROATE
     Indication: Erythema
     Dosage: TIME INTERVAL: AS NECESSARY
     Route: 061
     Dates: start: 20221216
  15. HYDROCORTISONE [Concomitant]
     Active Substance: HYDROCORTISONE
     Indication: Erythema
     Dosage: TIME INTERVAL: AS NECESSARY
     Route: 061
     Dates: start: 20221216
  16. LEVOFLOXACIN [Concomitant]
     Active Substance: LEVOFLOXACIN
     Indication: Antibiotic prophylaxis
     Route: 048
     Dates: start: 20230206, end: 20230305
  17. PANTOPRAZOLE SODIUM [Concomitant]
     Active Substance: PANTOPRAZOLE SODIUM
     Indication: Nausea
     Route: 051
     Dates: start: 20230220
  18. MAGNESIUM [Concomitant]
     Active Substance: MAGNESIUM
     Indication: Hypomagnesaemia
     Route: 048
     Dates: start: 20230306, end: 20230320
  19. MAGNESIUM [Concomitant]
     Active Substance: MAGNESIUM
     Indication: Hypomagnesaemia
     Dates: start: 20230306, end: 20230320
  20. TACROLIMUS [Concomitant]
     Active Substance: TACROLIMUS
     Indication: Graft versus host disease
     Dosage: IN THE MORNING
     Route: 048
     Dates: start: 20230228
  21. TACROLIMUS [Concomitant]
     Active Substance: TACROLIMUS
     Indication: Graft versus host disease
     Dosage: IN THE EVENING
     Route: 048
     Dates: start: 20230228

REACTIONS (1)
  - Gastroenteritis [Recovered/Resolved]

NARRATIVE: CASE EVENT DATE: 20230319
